FAERS Safety Report 21761226 (Version 3)
Quarter: 2023Q1

REPORT INFORMATION
  Report Type: Spontaneous
  Country: US (occurrence: US)
  Receive Date: 20221221
  Receipt Date: 20230324
  Transmission Date: 20230418
  Serious: Yes (Other)
  Sender: FDA-Public Use
  Company Number: US-ELI_LILLY_AND_COMPANY-US202212009848

PATIENT
  Age: 89 Year
  Sex: Female

DRUGS (4)
  1. FORTEO [Suspect]
     Active Substance: TERIPARATIDE
     Indication: Product used for unknown indication
     Dosage: 20 UG, UNKNOWN
     Route: 065
     Dates: start: 202111, end: 202208
  2. FORTEO [Suspect]
     Active Substance: TERIPARATIDE
     Dosage: UNK UNK, UNKNOWN
     Route: 065
     Dates: start: 202210
  3. MULTAQ [Concomitant]
     Active Substance: DRONEDARONE
     Indication: Product used for unknown indication
  4. CARDIZEM [Concomitant]
     Active Substance: DILTIAZEM HYDROCHLORIDE
     Indication: Product used for unknown indication
     Dosage: 120 MG, DAILY

REACTIONS (6)
  - Supraventricular tachycardia [Unknown]
  - Atrial tachycardia [Not Recovered/Not Resolved]
  - Atrial fibrillation [Not Recovered/Not Resolved]
  - Right atrial dilatation [Not Recovered/Not Resolved]
  - Arrhythmia [Unknown]
  - Discomfort [Unknown]

NARRATIVE: CASE EVENT DATE: 20220801
